FAERS Safety Report 10725549 (Version 6)
Quarter: 2015Q2

REPORT INFORMATION
  Report Type: Report from Study
  Country: BR (occurrence: BR)
  Receive Date: 20150121
  Receipt Date: 20150501
  Transmission Date: 20150821
  Serious: Yes (Hospitalization, Other)
  Sender: FDA-Public Use
  Company Number: BR-ROCHE-1465799

PATIENT
  Age: 70 Year
  Sex: Female
  Weight: 70 kg

DRUGS (17)
  1. ACTEMRA [Suspect]
     Active Substance: TOCILIZUMAB
     Indication: RHEUMATOID ARTHRITIS
     Route: 042
     Dates: start: 20140716
  2. ABATACEPT [Concomitant]
     Active Substance: ABATACEPT
  3. ACTEMRA [Suspect]
     Active Substance: TOCILIZUMAB
     Route: 042
     Dates: start: 20140814
  4. ACTEMRA [Suspect]
     Active Substance: TOCILIZUMAB
     Route: 042
     Dates: start: 20140922
  5. ACTEMRA [Suspect]
     Active Substance: TOCILIZUMAB
     Dosage: LAST DOSE RECEIVED
     Route: 042
     Dates: start: 201410
  6. FLUOXETINE [Concomitant]
     Active Substance: FLUOXETINE\FLUOXETINE HYDROCHLORIDE
  7. DIOVAN [Concomitant]
     Active Substance: VALSARTAN
  8. AAS [Concomitant]
     Active Substance: ASPIRIN
  9. OMEPRAZOLE. [Concomitant]
     Active Substance: OMEPRAZOLE
  10. ADALIMUMAB [Concomitant]
     Active Substance: ADALIMUMAB
  11. PREDNISONE. [Concomitant]
     Active Substance: PREDNISONE
  12. METICORTEN [Concomitant]
     Active Substance: PREDNISONE
  13. SIMVASTATIN. [Concomitant]
     Active Substance: SIMVASTATIN
  14. DAONIL [Concomitant]
     Active Substance: GLYBURIDE
  15. METFORMIN [Concomitant]
     Active Substance: METFORMIN HYDROCHLORIDE
  16. DEFLAZACORT [Concomitant]
     Active Substance: DEFLAZACORT
  17. METHOTREXATE [Concomitant]
     Active Substance: METHOTREXATE

REACTIONS (12)
  - Eating disorder [Not Recovered/Not Resolved]
  - Gingival disorder [Unknown]
  - Post procedural fistula [Unknown]
  - Iron deficiency anaemia [Unknown]
  - Eating disorder [Unknown]
  - Intestinal polyp [Unknown]
  - Rheumatoid arthritis [Unknown]
  - Postoperative wound infection [Recovered/Resolved]
  - Anaemia [Unknown]
  - Post procedural inflammation [Unknown]
  - Medical device complication [Unknown]
  - Urinary tract infection [Recovered/Resolved]

NARRATIVE: CASE EVENT DATE: 201408
